FAERS Safety Report 5703373-2 (Version None)
Quarter: 2008Q2

REPORT INFORMATION
  Report Type: 
  Country: None (occurrence: None)
  Receive Date: 20080411
  Receipt Date: 20080409
  Transmission Date: 20081010
  Serious: Yes (Death)
  Sender: FDA-Public Use
  Company Number: DE-BOEHRINGER INGELHEIM GMBH, GERMANY-2008-DE-02123DE

PATIENT
  Age: 65 Year
  Sex: Male
  Weight: 61 kg

DRUGS (4)
  1. SIFROL [Suspect]
     Indication: PARKINSON'S DISEASE
     Route: 048
  2. LEVOBETA [Concomitant]
     Indication: DEPRESSION
  3. MIRTAZAPINE [Concomitant]
     Indication: DEPRESSION
  4. HALDOL [Concomitant]
     Route: 048

REACTIONS (1)
  - COMPLETED SUICIDE [None]
